FAERS Safety Report 7386904-9 (Version None)
Quarter: 2011Q1

REPORT INFORMATION
  Report Type: 
  Country: None (occurrence: None)
  Receive Date: 20110331
  Receipt Date: 20110321
  Transmission Date: 20110831
  Serious: Yes (Hospitalization, Other)
  Sender: FDA-Public Use
  Company Number: US-BAXTER-2009BH019322

PATIENT
  Age: 55 Year
  Sex: Female
  Weight: 122 kg

DRUGS (12)
  1. PHENERGAN HCL [Suspect]
     Indication: NAUSEA
     Route: 042
     Dates: start: 20071108
  2. ZYRTEC [Concomitant]
     Indication: PRODUCT USED FOR UNKNOWN INDICATION
     Route: 048
  3. REGLAN [Concomitant]
     Indication: PRODUCT USED FOR UNKNOWN INDICATION
     Route: 042
     Dates: end: 20071108
  4. JANUVIA [Concomitant]
     Indication: DIABETES MELLITUS
     Route: 048
  5. ALBUTEROL [Concomitant]
     Indication: PRODUCT USED FOR UNKNOWN INDICATION
     Route: 055
  6. ZETIA [Concomitant]
     Indication: PRODUCT USED FOR UNKNOWN INDICATION
     Route: 048
  7. SINGULAIR [Concomitant]
     Indication: PRODUCT USED FOR UNKNOWN INDICATION
     Route: 048
  8. ACIPHEX [Concomitant]
     Indication: PRODUCT USED FOR UNKNOWN INDICATION
     Route: 065
  9. ACCUPRIL [Concomitant]
     Indication: PRODUCT USED FOR UNKNOWN INDICATION
     Route: 048
  10. DUONEB [Concomitant]
     Indication: PRODUCT USED FOR UNKNOWN INDICATION
     Route: 065
  11. PHENERGAN HCL [Suspect]
     Indication: VOMITING
     Route: 042
     Dates: start: 20071108
  12. SYNTHROID [Concomitant]
     Indication: PRODUCT USED FOR UNKNOWN INDICATION
     Route: 048

REACTIONS (12)
  - CYANOSIS [None]
  - NEUROMA [None]
  - OEDEMA PERIPHERAL [None]
  - NEUROPATHY PERIPHERAL [None]
  - TENDON DISORDER [None]
  - PAIN IN EXTREMITY [None]
  - COMPARTMENT SYNDROME [None]
  - OSTEOARTHRITIS [None]
  - MUSCLE CONTRACTURE [None]
  - CORYNEBACTERIUM INFECTION [None]
  - ERYTHEMA [None]
  - COMPLEX REGIONAL PAIN SYNDROME [None]
